FAERS Safety Report 24743508 (Version 2)
Quarter: 2025Q1

REPORT INFORMATION
  Report Type: Spontaneous
  Country: US (occurrence: US)
  Receive Date: 20241217
  Receipt Date: 20250310
  Transmission Date: 20250408
  Serious: Yes (Hospitalization, Other)
  Sender: PFIZER
  Company Number: US-PFIZER INC-202400327523

PATIENT
  Age: 61 Year
  Sex: Female

DRUGS (1)
  1. TALZENNA [Suspect]
     Active Substance: TALAZOPARIB TOSYLATE
     Dosage: 0.75 MG, DAILY
     Route: 048
     Dates: start: 20240109

REACTIONS (1)
  - Acute pulmonary oedema [Recovering/Resolving]

NARRATIVE: CASE EVENT DATE: 20241128
